FAERS Safety Report 21763035 (Version 2)
Quarter: 2023Q1

REPORT INFORMATION
  Report Type: Report from Study
  Country: FR (occurrence: FR)
  Receive Date: 20221221
  Receipt Date: 20230110
  Transmission Date: 20230418
  Serious: Yes (Other)
  Sender: FDA-Public Use
  Company Number: FR-GILEAD-2022-0609364

PATIENT
  Sex: Female
  Weight: 51 kg

DRUGS (5)
  1. SACITUZUMAB GOVITECAN-HZIY [Suspect]
     Active Substance: SACITUZUMAB GOVITECAN-HZIY
     Indication: Breast cancer
     Dosage: 10 MG/KG ON C1D1 AND C1D8
     Route: 042
     Dates: start: 20220927, end: 20221004
  2. SACITUZUMAB GOVITECAN-HZIY [Suspect]
     Active Substance: SACITUZUMAB GOVITECAN-HZIY
     Dosage: 10 MG/KG ON C2D1 AND C2D8
     Route: 042
     Dates: start: 20221025, end: 20221028
  3. SACITUZUMAB GOVITECAN-HZIY [Suspect]
     Active Substance: SACITUZUMAB GOVITECAN-HZIY
     Dosage: 10 MG/KG ON C3D1 AND C3D8
     Route: 042
     Dates: start: 20221108, end: 20221115
  4. SACITUZUMAB GOVITECAN-HZIY [Suspect]
     Active Substance: SACITUZUMAB GOVITECAN-HZIY
     Dosage: 10 MG/KG ON C4D1 AND C4D8
     Route: 042
     Dates: start: 20221129, end: 20221206
  5. SACITUZUMAB GOVITECAN-HZIY [Suspect]
     Active Substance: SACITUZUMAB GOVITECAN-HZIY
     Dosage: 8 MG/KG
     Route: 042
     Dates: start: 20221206

REACTIONS (2)
  - Cytopenia [Unknown]
  - Off label use [Recovered/Resolved]
